FAERS Safety Report 23423739 (Version 3)
Quarter: 2024Q1

REPORT INFORMATION
  Report Type: Spontaneous
  Country: US (occurrence: US)
  Receive Date: 20240119
  Receipt Date: 20240301
  Transmission Date: 20240409
  Serious: Yes (Hospitalization, Disabling, Other)
  Sender: FDA-Public Use
  Company Number: US-SA-SAC20240115000608

PATIENT
  Age: 72 Year
  Sex: Female

DRUGS (2)
  1. REZUROCK [Suspect]
     Active Substance: BELUMOSUDIL
     Indication: Chronic graft versus host disease
     Dosage: 200 MG, QD
     Route: 048
     Dates: start: 20211129
  2. ELIQUIS [Concomitant]
     Active Substance: APIXABAN
     Dosage: 5 MG, TOTAL

REACTIONS (10)
  - Thrombosis [Unknown]
  - Swelling [Unknown]
  - Loss of personal independence in daily activities [Unknown]
  - Pain in extremity [Unknown]
  - Platelet morphology abnormal [Unknown]
  - Emotional disorder [Unknown]
  - General physical health deterioration [Unknown]
  - Pain [Unknown]
  - Feeling abnormal [Unknown]
  - Depressed mood [Unknown]
